FAERS Safety Report 5956013-1 (Version None)
Quarter: 2008Q4

REPORT INFORMATION
  Report Type: 
  Country: None (occurrence: None)
  Receive Date: 20081113
  Receipt Date: 20081104
  Transmission Date: 20090506
  Serious: Yes (Hospitalization, Other)
  Sender: FDA-Public Use
  Company Number: US024840

PATIENT
  Age: 74 Year
  Sex: Male

DRUGS (21)
  1. TRISENOX [Suspect]
     Indication: ACUTE PROMYELOCYTIC LEUKAEMIA
     Dosage: 12 MG DAYS 1-5 INTRAVENOUS
     Route: 042
     Dates: start: 20080909, end: 20080919
  2. TRISENOX [Suspect]
     Indication: ACUTE PROMYELOCYTIC LEUKAEMIA
     Dosage: INTRAVENOUS
     Route: 042
     Dates: start: 20080915, end: 20080919
  3. ZEVEDOS [Suspect]
     Indication: ACUTE MYELOID LEUKAEMIA
     Dosage: 18 MG DAYS 3, 5, 7
     Dates: start: 20080731, end: 20080903
  4. ZEVEDOS [Suspect]
     Indication: ACUTE MYELOID LEUKAEMIA
     Dosage: DAYS 1 AND 3
     Dates: start: 20080909, end: 20080917
  5. GRANOCYTE /01003403/ [Suspect]
     Dosage: A FEW DAYS INTRAVENOUS
     Route: 042
     Dates: start: 20080922
  6. ONDANSETRON [Suspect]
     Dosage: INTRAVENOUS
     Route: 042
     Dates: start: 20080922
  7. SOLUPRED [Concomitant]
  8. VESANOID /00016209/ [Concomitant]
  9. SOLU-MEDROL [Concomitant]
  10. BRICANYL [Concomitant]
  11. PLAVIX [Concomitant]
  12. AMLOD [Concomitant]
  13. TEMERIT /01339101/ [Concomitant]
  14. OMEPRAZOLE [Concomitant]
  15. ZOLPIDEM [Concomitant]
  16. PRIMPERAN /00041901/ [Concomitant]
  17. ACUPAN [Concomitant]
  18. LOVENOX [Concomitant]
  19. INIPOMP /01263201/ [Concomitant]
  20. ROCEPHIN [Suspect]
     Dosage: UNK, INTRAVENOUS
     Route: 042
     Dates: start: 20080909
  21. OFLOXACIN [Suspect]
     Dosage: UNK, INTRAVENOUS
     Route: 042
     Dates: start: 20080909

REACTIONS (9)
  - ATELECTASIS [None]
  - CATHETER RELATED INFECTION [None]
  - INTERSTITIAL LUNG DISEASE [None]
  - LUNG INFILTRATION [None]
  - PANCYTOPENIA [None]
  - PERICARDIAL EFFUSION [None]
  - PULMONARY EMBOLISM [None]
  - SEPSIS [None]
  - STAPHYLOCOCCAL INFECTION [None]
